FAERS Safety Report 25227162 (Version 2)
Quarter: 2025Q2

REPORT INFORMATION
  Report Type: Spontaneous
  Country: PT (occurrence: PT)
  Receive Date: 20250422
  Receipt Date: 20250428
  Transmission Date: 20250717
  Serious: Yes (Other)
  Sender: MYLAN
  Company Number: PT-ORESUND-25OPAJY0268P

PATIENT
  Age: 54 Year
  Sex: Male

DRUGS (28)
  1. METHOTREXATE [Suspect]
     Active Substance: METHOTREXATE
     Indication: Birdshot chorioretinopathy
     Route: 065
  2. METHOTREXATE [Suspect]
     Active Substance: METHOTREXATE
     Indication: Cystoid macular oedema
  3. METHOTREXATE [Suspect]
     Active Substance: METHOTREXATE
  4. METHOTREXATE [Suspect]
     Active Substance: METHOTREXATE
     Route: 065
  5. METHOTREXATE [Suspect]
     Active Substance: METHOTREXATE
     Route: 065
  6. METHOTREXATE [Suspect]
     Active Substance: METHOTREXATE
  7. METHOTREXATE [Suspect]
     Active Substance: METHOTREXATE
  8. METHOTREXATE [Suspect]
     Active Substance: METHOTREXATE
     Route: 065
  9. DEXAMETHASONE [Suspect]
     Active Substance: DEXAMETHASONE
     Indication: Birdshot chorioretinopathy
  10. DEXAMETHASONE [Suspect]
     Active Substance: DEXAMETHASONE
     Route: 061
  11. DEXAMETHASONE [Suspect]
     Active Substance: DEXAMETHASONE
     Route: 061
  12. DEXAMETHASONE [Suspect]
     Active Substance: DEXAMETHASONE
  13. PREDNISOLONE [Suspect]
     Active Substance: PREDNISOLONE
     Indication: Birdshot chorioretinopathy
  14. PREDNISOLONE [Suspect]
     Active Substance: PREDNISOLONE
     Route: 048
  15. PREDNISOLONE [Suspect]
     Active Substance: PREDNISOLONE
     Route: 048
  16. PREDNISOLONE [Suspect]
     Active Substance: PREDNISOLONE
  17. CYCLOSPORINE [Suspect]
     Active Substance: CYCLOSPORINE
     Indication: Birdshot chorioretinopathy
  18. CYCLOSPORINE [Suspect]
     Active Substance: CYCLOSPORINE
     Route: 065
  19. CYCLOSPORINE [Suspect]
     Active Substance: CYCLOSPORINE
     Route: 065
  20. CYCLOSPORINE [Suspect]
     Active Substance: CYCLOSPORINE
  21. OZURDEX [Suspect]
     Active Substance: DEXAMETHASONE
     Indication: Product used for unknown indication
  22. OZURDEX [Suspect]
     Active Substance: DEXAMETHASONE
  23. OZURDEX [Suspect]
     Active Substance: DEXAMETHASONE
  24. OZURDEX [Suspect]
     Active Substance: DEXAMETHASONE
  25. ILUVIEN [Suspect]
     Active Substance: FLUOCINOLONE ACETONIDE
     Indication: Product used for unknown indication
  26. ILUVIEN [Suspect]
     Active Substance: FLUOCINOLONE ACETONIDE
  27. ILUVIEN [Suspect]
     Active Substance: FLUOCINOLONE ACETONIDE
  28. ILUVIEN [Suspect]
     Active Substance: FLUOCINOLONE ACETONIDE

REACTIONS (12)
  - Retinal cyst [Recovering/Resolving]
  - Macular oedema [Recovering/Resolving]
  - Ocular hypertension [Recovering/Resolving]
  - Drug ineffective [Unknown]
  - Lymphocytosis [Recovering/Resolving]
  - Inflammation [Recovering/Resolving]
  - Disease recurrence [Recovering/Resolving]
  - Epiretinal membrane [Recovering/Resolving]
  - Visual acuity reduced [Recovering/Resolving]
  - Off label use [Unknown]
  - Therapy change [Unknown]
  - Investigation noncompliance [Unknown]
